FAERS Safety Report 22101876 (Version 1)
Quarter: 2023Q1

REPORT INFORMATION
  Report Type: Spontaneous
  Country: US (occurrence: US)
  Receive Date: 20230316
  Receipt Date: 20230316
  Transmission Date: 20230418
  Serious: Yes (Other)
  Sender: FDA-Public Use
  Company Number: US-HALEON-USCH2023AMR011313

PATIENT

DRUGS (13)
  1. FLONASE [Suspect]
     Active Substance: FLUTICASONE PROPIONATE
     Indication: Rhinitis
     Dosage: QD
  2. FLONASE [Suspect]
     Active Substance: FLUTICASONE PROPIONATE
     Indication: Multiple allergies
  3. HYDRODIURIL [Suspect]
     Active Substance: HYDROCHLOROTHIAZIDE
     Indication: Hypertension
     Dosage: 25 MG, QD
     Route: 048
     Dates: end: 20230215
  4. SILDENAFIL CITRATE [Suspect]
     Active Substance: SILDENAFIL CITRATE
     Indication: Pulmonary arterial hypertension
     Dosage: UNK
  5. TYVASO [Suspect]
     Active Substance: TREPROSTINIL
     Indication: Pulmonary arterial hypertension
     Dosage: 54 ?G, QID
     Route: 055
     Dates: start: 20220208
  6. TYVASO [Suspect]
     Active Substance: TREPROSTINIL
     Dosage: UNK
     Route: 055
  7. TYVASO [Suspect]
     Active Substance: TREPROSTINIL
     Dosage: UNK
     Route: 055
  8. REVATIO [Concomitant]
     Active Substance: SILDENAFIL CITRATE
     Indication: Product used for unknown indication
     Dosage: 20 MG
  9. LETAIRIS [Concomitant]
     Active Substance: AMBRISENTAN
     Indication: Product used for unknown indication
     Dosage: 10 MG
  10. VITAMIN D3 [Concomitant]
     Active Substance: CHOLECALCIFEROL
     Indication: Product used for unknown indication
     Dosage: UNK
  11. TESSALON [Concomitant]
     Active Substance: BENZONATATE
     Indication: Product used for unknown indication
     Dosage: 100 MG
  12. DIPHENHYDRAMINE HYDROCHLORIDE [Concomitant]
     Active Substance: DIPHENHYDRAMINE HYDROCHLORIDE
     Indication: Product used for unknown indication
     Dosage: 25 MG
  13. VENTOLIN HFA [Concomitant]
     Active Substance: ALBUTEROL SULFATE
     Indication: Product used for unknown indication
     Dosage: UNK

REACTIONS (26)
  - Blood potassium decreased [Recovered/Resolved]
  - Blood pressure increased [Unknown]
  - Stress [Recovered/Resolved]
  - Angina pectoris [Unknown]
  - Carotid artery stenosis [Unknown]
  - Pruritus [Unknown]
  - Chest pain [Not Recovered/Not Resolved]
  - Type V hyperlipidaemia [Unknown]
  - Aortic valve stenosis [Unknown]
  - Essential hypertension [Unknown]
  - Chest discomfort [Unknown]
  - Hyperhidrosis [Unknown]
  - Dyspepsia [Unknown]
  - Condition aggravated [Unknown]
  - Dyspnoea exertional [Recovered/Resolved]
  - Emotional disorder [Unknown]
  - Headache [Unknown]
  - Blood pressure decreased [Unknown]
  - Drug intolerance [Unknown]
  - Anxiety [Unknown]
  - Ear infection [Unknown]
  - Pain [Unknown]
  - Gastrooesophageal reflux disease [Unknown]
  - Pain in jaw [Unknown]
  - Nervousness [Unknown]
  - Swelling face [Unknown]

NARRATIVE: CASE EVENT DATE: 20221208
